FAERS Safety Report 16985126 (Version 1)
Quarter: 2019Q4

REPORT INFORMATION
  Report Type: Report from Study
  Country: US (occurrence: US)
  Receive Date: 20191101
  Receipt Date: 20191101
  Transmission Date: 20200122
  Serious: Yes (Other)
  Sender: FDA-Public Use
  Company Number: US-BIOGEN-2019BI00800981

PATIENT
  Age: 49 Year
  Sex: Female

DRUGS (1)
  1. TECFIDERA [Suspect]
     Active Substance: DIMETHYL FUMARATE
     Indication: MULTIPLE SCLEROSIS
     Route: 048
     Dates: start: 20190423

REACTIONS (6)
  - Cerebrovascular accident [Unknown]
  - Bursitis [Unknown]
  - Hypoaesthesia [Unknown]
  - Muscular weakness [Unknown]
  - Burning sensation [Unknown]
  - Arthritis [Unknown]

NARRATIVE: CASE EVENT DATE: 201907
